FAERS Safety Report 6510410-4 (Version None)
Quarter: 2009Q4

REPORT INFORMATION
  Report Type: 
  Country: None (occurrence: None)
  Receive Date: 20091222
  Receipt Date: 20091215
  Transmission Date: 20100525
  Serious: Yes (Hospitalization)
  Sender: FDA-Public Use
  Company Number: A0836069A

PATIENT
  Sex: Female

DRUGS (1)
  1. AVANDAMET [Suspect]
     Route: 048
     Dates: start: 20010101, end: 20080101

REACTIONS (1)
  - MYOCARDIAL INFARCTION [None]
